FAERS Safety Report 8357612-2 (Version None)
Quarter: 2012Q2

REPORT INFORMATION
  Report Type: 
  Country: None (occurrence: None)
  Receive Date: 20120511
  Receipt Date: 20120502
  Transmission Date: 20120825
  Serious: Yes (Death, Other)
  Sender: FDA-Public Use
  Company Number: AUR-APL-2011-06102

PATIENT
  Sex: Female
  Weight: 2.6 kg

DRUGS (1)
  1. SERTRALINE HYDROCHLORIDE [Suspect]
     Indication: PRODUCT USED FOR UNKNOWN INDICATION
     Dosage: 50 MG (50 MG, 1 IN 1 D),TRANSPLACENTAL
     Route: 064

REACTIONS (8)
  - FOETAL DEATH [None]
  - NEONATAL ASPHYXIA [None]
  - NEONATAL ASPIRATION [None]
  - LUNG DISORDER [None]
  - PETECHIAE [None]
  - HYPOXIA [None]
  - MATERNAL DRUGS AFFECTING FOETUS [None]
  - CARDIAC DISORDER [None]
